FAERS Safety Report 21260043 (Version 1)
Quarter: 2022Q3

REPORT INFORMATION
  Report Type: Spontaneous
  Country: US (occurrence: None)
  Receive Date: 20220825
  Receipt Date: 20220825
  Transmission Date: 20221027
  Serious: Yes (Life-Threatening, Hospitalization)
  Sender: FDA-Public Use
  Company Number: None

PATIENT
  Age: 46 Year
  Sex: Male
  Weight: 67.5 kg

DRUGS (7)
  1. RISPERDAL [Suspect]
     Active Substance: RISPERIDONE
     Indication: Schizophrenia
     Dosage: OTHER QUANTITY : 500 INJECTION(S);?OTHER FREQUENCY : DAILY, SHOTS;?OTHER ROUTE : INJECTION,ORAL;?
     Route: 050
     Dates: start: 20150409
  2. RISPERDAL [Suspect]
     Active Substance: RISPERIDONE
     Indication: Psychotic disorder
  3. INVEGA [Suspect]
     Active Substance: PALIPERIDONE
  4. VITAMINS [Concomitant]
     Active Substance: VITAMINS
  5. ASPIRIN [Concomitant]
     Active Substance: ASPIRIN
  6. ibproforin [Concomitant]
  7. acitimeniphen [Concomitant]

REACTIONS (3)
  - Gynaecomastia [None]
  - Tardive dyskinesia [None]
  - Dysphagia [None]

NARRATIVE: CASE EVENT DATE: 20220825
